FAERS Safety Report 25405180 (Version 1)
Quarter: 2025Q2

REPORT INFORMATION
  Report Type: Spontaneous
  Country: JP (occurrence: JP)
  Receive Date: 20250606
  Receipt Date: 20250606
  Transmission Date: 20250716
  Serious: Yes (Other)
  Sender: AMGEN
  Company Number: JP-AMGEN-JPNSP2025108756

PATIENT
  Age: 71 Year
  Sex: Male

DRUGS (9)
  1. BLINCYTO [Suspect]
     Active Substance: BLINATUMOMAB
     Indication: Product used for unknown indication
     Route: 040
  2. BLINCYTO [Suspect]
     Active Substance: BLINATUMOMAB
     Route: 040
     Dates: start: 20210114, end: 20210115
  3. BLINCYTO [Suspect]
     Active Substance: BLINATUMOMAB
     Route: 040
     Dates: start: 202101, end: 202101
  4. BLINCYTO [Suspect]
     Active Substance: BLINATUMOMAB
     Route: 040
     Dates: start: 20210119, end: 2021
  5. BLINCYTO [Suspect]
     Active Substance: BLINATUMOMAB
     Dosage: 9 MICROGRAM, QD
     Route: 040
     Dates: start: 20211123
  6. DASATINIB [Concomitant]
     Active Substance: DASATINIB
     Dates: start: 20201215, end: 20210312
  7. PREDNISOLONE [Concomitant]
     Active Substance: PREDNISOLONE
     Dates: start: 20201215
  8. CYCLOPHOSPHAMIDE\CYTARABINE\DEXAMETHASONE\DOXORUBICIN\METHOTREXATE\VIN [Concomitant]
     Active Substance: CYCLOPHOSPHAMIDE\CYTARABINE\DEXAMETHASONE\DOXORUBICIN\METHOTREXATE\VINCRISTINE
     Dates: start: 20210128
  9. PONATINIB [Concomitant]
     Active Substance: PONATINIB
     Dates: start: 20210319

REACTIONS (16)
  - Immune effector cell-associated neurotoxicity syndrome [Unknown]
  - Cytokine release syndrome [Unknown]
  - Cytomegalovirus enteritis [Unknown]
  - Pneumonia [Unknown]
  - Renal cell carcinoma [Unknown]
  - Chronic kidney disease [Unknown]
  - Renal impairment [Unknown]
  - Gastric antral vascular ectasia [Unknown]
  - Benign prostatic hyperplasia [Unknown]
  - Hypertension [Unknown]
  - Cellulitis [Unknown]
  - Gastroenteritis eosinophilic [Unknown]
  - Pleural effusion [Unknown]
  - Rash [Unknown]
  - Erythema [Unknown]
  - Swelling face [Unknown]

NARRATIVE: CASE EVENT DATE: 20210218
